FAERS Safety Report 16342391 (Version 1)
Quarter: 2019Q2

REPORT INFORMATION
  Report Type: Spontaneous
  Country: US (occurrence: US)
  Receive Date: 20190522
  Receipt Date: 20190522
  Transmission Date: 20190711
  Serious: Yes (Other)
  Sender: FDA-Public Use
  Company Number: US-ROCHE-2276105

PATIENT
  Age: 14 Year
  Sex: Female

DRUGS (1)
  1. XOFLUZA [Suspect]
     Active Substance: BALOXAVIR MARBOXIL
     Indication: INFLUENZA
     Dosage: TWO 20MG TABLETS IN A SINGLE DOSE
     Route: 065
     Dates: start: 201902

REACTIONS (2)
  - No adverse event [Unknown]
  - Treatment failure [Unknown]
